FAERS Safety Report 4338426-7 (Version None)
Quarter: 2004Q2

REPORT INFORMATION
  Report Type: 
  Country: None (occurrence: None)
  Receive Date: 20040407
  Receipt Date: 20040325
  Transmission Date: 20050107
  Serious: Yes (Hospitalization)
  Sender: FDA-Public Use
  Company Number: 205400

PATIENT
  Age: 59 Year
  Sex: Female
  Weight: 69.4 kg

DRUGS (1)
  1. HERCEPTIN [Suspect]
     Indication: BREAST CANCER
     Dosage: 8 MG/KG,Q3W, INTRAVENOUS
     Route: 042
     Dates: start: 20040123, end: 20040123

REACTIONS (1)
  - CEREBRAL INFARCTION [None]
